FAERS Safety Report 14930883 (Version 1)
Quarter: 2018Q2

REPORT INFORMATION
  Report Type: Spontaneous
  Country: US (occurrence: US)
  Receive Date: 20180524
  Receipt Date: 20180524
  Transmission Date: 20180711
  Serious: No
  Sender: FDA-Public Use
  Company Number: US-BAUSCH-BL-2017-015809

PATIENT
  Sex: Male

DRUGS (5)
  1. PREDNISOLONE. [Suspect]
     Active Substance: PREDNISOLONE
     Indication: OCULAR HYPERAEMIA
     Route: 047
  2. BETIMOL [Suspect]
     Active Substance: TIMOLOL
     Indication: INTRAOCULAR PRESSURE TEST ABNORMAL
     Route: 047
  3. SOOTHE LONG LASTING [Suspect]
     Active Substance: POVIDONE
     Indication: OCULAR HYPERAEMIA
  4. PROLENSA [Suspect]
     Active Substance: BROMFENAC SODIUM
     Indication: OCULAR HYPERAEMIA
     Dosage: ONE DROP IN EACH EYE
     Route: 047
     Dates: start: 20170510
  5. SOOTHE LONG LASTING [Suspect]
     Active Substance: POVIDONE
     Indication: DRY EYE
     Route: 047

REACTIONS (1)
  - Drug ineffective [Not Recovered/Not Resolved]
